FAERS Safety Report 7491911-1 (Version None)
Quarter: 2011Q2

REPORT INFORMATION
  Report Type: 
  Country: None (occurrence: None)
  Receive Date: 20110518
  Receipt Date: 20110518
  Transmission Date: 20111010
  Serious: Yes (Hospitalization)
  Sender: FDA-Public Use
  Company Number: None

PATIENT
  Sex: Female
  Weight: 92 kg

DRUGS (1)
  1. CYTARABINE [Suspect]
     Dosage: 5700 MG
     Dates: end: 20110321

REACTIONS (3)
  - VAGINAL HAEMORRHAGE [None]
  - FEBRILE NEUTROPENIA [None]
  - CONDITION AGGRAVATED [None]
